FAERS Safety Report 6115381-0 (Version None)
Quarter: 2009Q1

REPORT INFORMATION
  Report Type: 
  Country: None (occurrence: None)
  Receive Date: 20090313
  Receipt Date: 20090304
  Transmission Date: 20090719
  Serious: Yes (Other)
  Sender: FDA-Public Use
  Company Number: PHEH2007US05535

PATIENT
  Sex: Male

DRUGS (7)
  1. AREDIA [Suspect]
  2. ZOMETA [Suspect]
  3. FOSAMAX [Suspect]
  4. TAXOTERE [Concomitant]
  5. PREDNISONE [Concomitant]
  6. LUPRON [Concomitant]
  7. CASODEX [Concomitant]

REACTIONS (7)
  - ANXIETY [None]
  - BONE DISORDER [None]
  - INFECTION [None]
  - INJURY [None]
  - LOOSE TOOTH [None]
  - OSTEONECROSIS [None]
  - PAIN [None]
